FAERS Safety Report 4745807-6 (Version None)
Quarter: 2005Q3

REPORT INFORMATION
  Report Type: 
  Country: None (occurrence: None)
  Receive Date: 20050815
  Receipt Date: 20050815
  Transmission Date: 20060218
  Serious: Yes (Hospitalization, Other)
  Sender: FDA-Public Use
  Company Number: None

PATIENT
  Age: 55 Year
  Sex: Male
  Weight: 154.223 kg

DRUGS (4)
  1. BUPROPION SR [Suspect]
     Indication: TOBACCO USER
     Dosage: 150MG  2 TIMES DAILY  ORAL
     Route: 048
     Dates: start: 20041116, end: 20041215
  2. HYDROCHLOROTHIAZIDE [Concomitant]
  3. NORVASC [Concomitant]
  4. ALLOPURINOL [Concomitant]

REACTIONS (6)
  - AGITATION [None]
  - ANGER [None]
  - ATRIAL FIBRILLATION [None]
  - IRRITABILITY [None]
  - PSYCHIATRIC SYMPTOM [None]
  - THERAPEUTIC RESPONSE UNEXPECTED WITH DRUG SUBSTITUTION [None]
